FAERS Safety Report 6536420-9 (Version None)
Quarter: 2010Q1

REPORT INFORMATION
  Report Type: 
  Country: None (occurrence: None)
  Receive Date: 20100106
  Receipt Date: 20091222
  Transmission Date: 20100710
  Serious: Yes (Hospitalization)
  Sender: FDA-Public Use
  Company Number: 231512J09USA

PATIENT
  Age: 65 Year
  Sex: Male
  Weight: 106 kg

DRUGS (2)
  1. REBIF [Suspect]
     Indication: MULTIPLE SCLEROSIS
     Dosage: 44 MCG, 3 IN 1 WEEKS, SUBCUTANEOUS
     Route: 058
     Dates: start: 20040915
  2. ASPIRIN [Suspect]
     Indication: ROUTINE HEALTH MAINTENANCE
     Dosage: 81 MG, 1 IN 1 DAYS, NOT REPORTED
     Dates: start: 20050101, end: 20091201

REACTIONS (7)
  - ASTHENIA [None]
  - BLOOD PRESSURE INCREASED [None]
  - CONDITION AGGRAVATED [None]
  - DIVERTICULITIS [None]
  - FEELING COLD [None]
  - HYPOTENSION [None]
  - RED BLOOD CELL COUNT DECREASED [None]
